FAERS Safety Report 9687869 (Version 1)
Quarter: 2013Q4

REPORT INFORMATION
  Report Type: Spontaneous
  Country: US (occurrence: None)
  Receive Date: 20131113
  Receipt Date: 20131113
  Transmission Date: 20140711
  Serious: Yes (Hospitalization)
  Sender: FDA-Public Use
  Company Number: None

PATIENT
  Age: 61 Year
  Sex: Male
  Weight: 104 kg

DRUGS (8)
  1. RIXUBIS 1011 IU/3579 IU [Suspect]
     Indication: FACTOR IX DEFICIENCY
     Dosage: 6122 UNITS +/- 10% DAILY X 4 QD INTRAVENOUS
     Route: 042
     Dates: start: 20121029, end: 20131031
  2. ATENOLOL [Concomitant]
  3. BUSPIRONE [Concomitant]
  4. BUPROPION HCL [Concomitant]
  5. LEVOTHYROXINE [Concomitant]
  6. PRILOSEC [Concomitant]
  7. SIMVASTATIN [Concomitant]
  8. LITHIUM CARBONATE [Concomitant]

REACTIONS (9)
  - Pruritus [None]
  - Dyspnoea [None]
  - Feeling hot [None]
  - Claustrophobia [None]
  - Gait disturbance [None]
  - Tremor [None]
  - Cognitive disorder [None]
  - Antipsychotic drug level increased [None]
  - Infusion related reaction [None]
